FAERS Safety Report 5776490-9 (Version None)
Quarter: 2008Q2

REPORT INFORMATION
  Report Type: 
  Country: None (occurrence: None)
  Receive Date: 20080618
  Receipt Date: 20080606
  Transmission Date: 20081010
  Serious: Yes (Hospitalization)
  Sender: FDA-Public Use
  Company Number: MX-ELI_LILLY_AND_COMPANY-MX200806001694

PATIENT
  Sex: Female
  Weight: 52 kg

DRUGS (7)
  1. GEMCITABINE HCL [Suspect]
     Indication: BREAST CANCER METASTATIC
     Dosage: 1000 MG/M2, OTHER
     Route: 042
     Dates: start: 20080424
  2. DOCETAXEL [Suspect]
     Indication: BREAST CANCER METASTATIC
     Dosage: 75 MG/M2, UNKNOWN
     Route: 042
     Dates: start: 20080424
  3. CAPECITABINE [Suspect]
     Indication: BREAST CANCER METASTATIC
     Dosage: 1000 MG/M2, 2/D
     Route: 042
     Dates: start: 20080424
  4. NEURONTIN [Concomitant]
     Indication: NEUROPATHY PERIPHERAL
     Dosage: UNK, UNKNOWN
     Route: 065
     Dates: start: 20060320
  5. CAPTOPRIL [Concomitant]
     Indication: HYPERTENSION
     Dosage: UNK, UNKNOWN
     Route: 065
     Dates: start: 20060315
  6. ALDACTONE [Concomitant]
     Indication: OEDEMA PERIPHERAL
     Dosage: UNK, UNKNOWN
     Route: 065
     Dates: start: 20070726
  7. FLUOROURACIL [Concomitant]
     Dosage: UNK, UNKNOWN
     Route: 065

REACTIONS (1)
  - CARDIOTOXICITY [None]
